FAERS Safety Report 18270309 (Version 2)
Quarter: 2021Q1

REPORT INFORMATION
  Report Type: Spontaneous
  Country: DE (occurrence: DE)
  Receive Date: 20200916
  Receipt Date: 20210301
  Transmission Date: 20210419
  Serious: Yes (Hospitalization, Other)
  Sender: FDA-Public Use
  Company Number: DE-SA-2020SA244498

PATIENT
  Sex: Male

DRUGS (1)
  1. FABRAZYME [Suspect]
     Active Substance: AGALSIDASE BETA
     Dosage: 2 VIALS, EVERY 14 DAYS
     Route: 041
     Dates: start: 2010

REACTIONS (6)
  - Bacteraemia [Unknown]
  - Wrong technique in product usage process [Unknown]
  - Hypersensitivity [Recovering/Resolving]
  - Localised infection [Unknown]
  - Product contamination microbial [Unknown]
  - Pyrexia [Recovering/Resolving]

NARRATIVE: CASE EVENT DATE: 2020
